FAERS Safety Report 6129255-2 (Version None)
Quarter: 2009Q1

REPORT INFORMATION
  Report Type: 
  Country: None (occurrence: None)
  Receive Date: 20090324
  Receipt Date: 20090312
  Transmission Date: 20090719
  Serious: Yes (Death)
  Sender: FDA-Public Use
  Company Number: US-ROCHE-617801

PATIENT
  Sex: Male

DRUGS (5)
  1. RIBAVIRIN [Suspect]
     Indication: HEPATITIS C
     Route: 065
  2. PEG-INTERFERON A-2A (RO 25-8310) [Suspect]
     Indication: HEPATITIS C
     Route: 065
     Dates: start: 20090122
  3. CLONAZEPAM [Suspect]
     Indication: BIPOLAR DISORDER
     Dosage: DOSE REPORTED AS 0.5.
     Route: 065
     Dates: start: 20080912
  4. SEROQUEL [Suspect]
     Indication: BIPOLAR DISORDER
     Route: 048
     Dates: start: 20080912
  5. CITALOPRAM HYDROBROMIDE [Concomitant]

REACTIONS (1)
  - ROAD TRAFFIC ACCIDENT [None]
